FAERS Safety Report 9964215 (Version 1)
Quarter: 2014Q1

REPORT INFORMATION
  Report Type: Report from Study
  Country: FR (occurrence: FR)
  Receive Date: 20140305
  Receipt Date: 20140305
  Transmission Date: 20141002
  Serious: Yes (Other)
  Sender: FDA-Public Use
  Company Number: FR-GILEAD-2014-0095509

PATIENT
  Age: 65 Year
  Sex: Male
  Weight: 97 kg

DRUGS (8)
  1. BLINDED EMTRICITABINE/TENOFOVIR DISOPROXIL FUMARATE [Suspect]
     Indication: HIV INFECTION
     Dosage: 200 UNKNOWN, QD
     Route: 065
     Dates: start: 20131113, end: 20131130
  2. BLINDED MARAVIROC [Suspect]
     Indication: HIV INFECTION
     Dosage: 200 UNKNOWN, QD
     Route: 065
     Dates: start: 20131113, end: 20131130
  3. BLINDED NORVIR [Suspect]
     Indication: HIV INFECTION
     Dosage: 200 UNKNOWN, QD
     Route: 065
     Dates: start: 20131113, end: 20131130
  4. BLINDED PREZISTA [Suspect]
     Indication: HIV INFECTION
     Dosage: 200 UNKNOWN, QD
     Route: 065
     Dates: start: 20131113, end: 20131130
  5. MARAVIROC [Suspect]
     Indication: HIV INFECTION
     Dosage: 150 UNKNOWN, BID
     Route: 065
     Dates: start: 20131113, end: 20131130
  6. BACTRIM [Suspect]
     Indication: HIV INFECTION
     Dosage: 400 UNKNOWN, QD
     Route: 065
     Dates: start: 20131113, end: 20131130
  7. PREZISTA [Suspect]
     Indication: HIV INFECTION
     Dosage: 600 UNKNOWN, BID
     Route: 065
     Dates: start: 20131113, end: 20131130
  8. NORVIR [Suspect]
     Indication: HIV INFECTION
     Dosage: 100 UNKNOWN, BID
     Dates: start: 20131113, end: 20131130

REACTIONS (4)
  - Chills [Recovered/Resolved]
  - Hyperthermia [Recovered/Resolved]
  - Generalised erythema [Recovered/Resolved]
  - Face oedema [Recovered/Resolved]
